FAERS Safety Report 4400761-1 (Version None)
Quarter: 2004Q3

REPORT INFORMATION
  Report Type: 
  Country: None (occurrence: None)
  Receive Date: 20040907
  Receipt Date: 20021204
  Transmission Date: 20050211
  Serious: No
  Sender: FDA-Public Use
  Company Number: US-BRISTOL-MYERS SQUIBB COMPANY-12129136

PATIENT
  Age: 26 Year
  Sex: Female

DRUGS (2)
  1. COUMADIN [Suspect]
     Indication: DEEP VEIN THROMBOSIS
     Dosage: COUMADIN 10 MG DAILY ON SUNDAY + 7.5 MG MON-SAT
     Route: 048
     Dates: start: 19990901, end: 20021204
  2. COUMADIN [Suspect]
     Indication: PULMONARY EMBOLISM
     Dosage: COUMADIN 10 MG DAILY ON SUNDAY + 7.5 MG MON-SAT
     Route: 048
     Dates: start: 19990901, end: 20021204

REACTIONS (2)
  - DRUG EXPOSURE DURING PREGNANCY [None]
  - NORMAL NEWBORN [None]
